FAERS Safety Report 10099493 (Version 2)
Quarter: 2014Q4

REPORT INFORMATION
  Report Type: Spontaneous
  Country: US (occurrence: US)
  Receive Date: 20140423
  Receipt Date: 20141104
  Transmission Date: 20150528
  Serious: Yes (Other)
  Sender: FDA-Public Use
  Company Number: US-BAYER-2014-059620

PATIENT
  Age: 28 Year
  Sex: Female

DRUGS (1)
  1. YAZ [Suspect]
     Active Substance: DROSPIRENONE\ETHINYL ESTRADIOL
     Dosage: UNK
     Route: 048
     Dates: start: 200509, end: 200609

REACTIONS (4)
  - Deep vein thrombosis [None]
  - Thrombophlebitis [Recovered/Resolved]
  - Injury [None]
  - Pain [None]

NARRATIVE: CASE EVENT DATE: 20051007
